FAERS Safety Report 5939310-5 (Version None)
Quarter: 2008Q4

REPORT INFORMATION
  Report Type: 
  Country: None (occurrence: None)
  Receive Date: 20081103
  Receipt Date: 20081022
  Transmission Date: 20090506
  Serious: Yes (Death, Hospitalization)
  Sender: FDA-Public Use
  Company Number: US-AMGEN-US177615

PATIENT
  Sex: Male

DRUGS (17)
  1. PANITUMUMAB [Suspect]
     Indication: COLORECTAL CANCER
     Route: 042
     Dates: start: 20060412, end: 20060414
  2. AVASTIN [Suspect]
     Route: 042
  3. OXALIPLATIN [Concomitant]
     Route: 042
  4. FOLINIC ACID [Concomitant]
     Route: 042
  5. FLUOROURACIL [Concomitant]
     Route: 042
  6. NITRO-DUR [Concomitant]
     Route: 065
  7. TYLENOL W/ CODEINE NO. 3 [Concomitant]
     Route: 048
  8. COMBIVENT [Concomitant]
     Route: 055
  9. CELEBREX [Concomitant]
     Route: 048
  10. ARICEPT [Concomitant]
     Route: 048
  11. HYDRALAZINE HYDROCHLORIDE [Concomitant]
     Route: 048
  12. NORVASC [Concomitant]
     Route: 048
  13. K-DUR [Concomitant]
     Route: 048
  14. TOPROL-XL [Concomitant]
     Route: 048
  15. PRILOSEC [Concomitant]
     Route: 065
  16. VASOTEC [Concomitant]
     Route: 065
  17. HEPARIN [Concomitant]
     Route: 065

REACTIONS (1)
  - ISCHAEMIC STROKE [None]
